FAERS Safety Report 4876087-9 (Version None)
Quarter: 2006Q1

REPORT INFORMATION
  Report Type: 
  Country: None (occurrence: None)
  Receive Date: 20060106
  Receipt Date: 20060106
  Transmission Date: 20060701
  Serious: Yes (Hospitalization)
  Sender: FDA-Public Use
  Company Number: None

PATIENT
  Sex: Female

DRUGS (6)
  1. DOCETAXEL [Suspect]
     Indication: PANCREATIC CARCINOMA
     Dosage: 40 MG IV
     Route: 042
     Dates: start: 20051222
  2. CAPECITABINE [Suspect]
     Indication: PANCREATIC CARCINOMA
     Dosage: 1900 MG PO
     Route: 048
     Dates: start: 20051222
  3. NORVASC [Concomitant]
  4. TRAZODONE HCL [Concomitant]
  5. LISINOPRIL [Concomitant]
  6. PROTONIX [Concomitant]

REACTIONS (4)
  - FALL [None]
  - OPEN FRACTURE [None]
  - RADIUS FRACTURE [None]
  - ULNA FRACTURE [None]
